FAERS Safety Report 13397721 (Version 1)
Quarter: 2017Q2

REPORT INFORMATION
  Report Type: Spontaneous
  Country: JP (occurrence: JP)
  Receive Date: 20170403
  Receipt Date: 20170403
  Transmission Date: 20170830
  Serious: Yes (Death, Other)
  Sender: FDA-Public Use
  Company Number: JP-PFIZER INC-2017139803

PATIENT
  Weight: 90 kg

DRUGS (3)
  1. FUTHAN [Concomitant]
     Active Substance: NAFAMOSTAT MESYLATE
     Dosage: 80UG, RATE20CC/HR FOR 32HR
  2. PRECEDEX [Suspect]
     Active Substance: DEXMEDETOMIDINE HYDROCHLORIDE
     Indication: SEDATION
     Dosage: 80 UG, RATE 20CC/HOUR
  3. PRECEDEX [Suspect]
     Active Substance: DEXMEDETOMIDINE HYDROCHLORIDE
     Dosage: 2800 UNK, UNK

REACTIONS (6)
  - Platelet count decreased [Unknown]
  - Ventricular tachycardia [Unknown]
  - Hyperpyrexia [Unknown]
  - Ventricular fibrillation [Fatal]
  - Blood creatine phosphokinase increased [Unknown]
  - Hypotension [Unknown]
